FAERS Safety Report 8182609-5 (Version None)
Quarter: 2012Q1

REPORT INFORMATION
  Report Type: 
  Country: None (occurrence: None)
  Receive Date: 20120305
  Receipt Date: 20120224
  Transmission Date: 20120608
  Serious: Yes (Disabling)
  Sender: FDA-Public Use
  Company Number: US-UCBSA-048640

PATIENT
  Age: 42 Year
  Sex: Female
  Weight: 70.76 kg

DRUGS (16)
  1. BENTYL [Concomitant]
     Route: 048
  2. CIMZIA [Suspect]
     Route: 058
     Dates: start: 20090827, end: 20100403
  3. PREDNISONE [Concomitant]
     Dosage: UNKNOWN DOSE
     Dates: start: 20080814, end: 20081101
  4. HUMIRA [Suspect]
     Indication: CROHN'S DISEASE
     Dosage: UNKNOWN DOSE
     Dates: start: 20101201, end: 20111207
  5. PREDNISONE [Concomitant]
     Dosage: UNKNOWN DOSE
     Dates: start: 20080612, end: 20080701
  6. BENTYL [Concomitant]
     Route: 048
  7. PREDNISONE [Concomitant]
     Indication: CROHN'S DISEASE
     Dosage: UNKNOWN DOSE
     Dates: start: 20001001, end: 20030601
  8. PREDNISONE [Concomitant]
     Dates: start: 20090723, end: 20091001
  9. PREDNISONE [Concomitant]
  10. CALCIUM [Concomitant]
     Indication: CROHN'S DISEASE
     Route: 048
  11. MULTI-VITAMIN [Concomitant]
     Indication: CROHN'S DISEASE
     Dosage: UNKNOWN DOSE
     Route: 048
  12. NEXIUM [Concomitant]
  13. WELLBUTRIN [Concomitant]
     Route: 048
  14. CIMZIA [Suspect]
     Indication: CROHN'S DISEASE
     Route: 058
     Dates: start: 20100403
  15. LEXAPRO [Concomitant]
     Route: 048
  16. WELLBUTRIN [Concomitant]
     Route: 048

REACTIONS (2)
  - ACUTE SINUSITIS [None]
  - VIRAL INFECTION [None]
